FAERS Safety Report 6868191-0 (Version None)
Quarter: 2010Q3

REPORT INFORMATION
  Report Type: 
  Country: None (occurrence: None)
  Receive Date: 20100722
  Receipt Date: 20100712
  Transmission Date: 20110219
  Serious: Yes (Disabling, Other)
  Sender: FDA-Public Use
  Company Number: FI-ABBOTT-10P-055-0656720-00

PATIENT
  Sex: Male

DRUGS (4)
  1. HUMIRA [Suspect]
     Indication: RHEUMATOID ARTHRITIS
  2. METHOTREXATE [Concomitant]
     Indication: PRODUCT USED FOR UNKNOWN INDICATION
  3. PREDNISONE TAB [Concomitant]
     Indication: PRODUCT USED FOR UNKNOWN INDICATION
  4. ATACAND [Concomitant]
     Indication: BLOOD PRESSURE MANAGEMENT

REACTIONS (4)
  - BALANCE DISORDER [None]
  - BLINDNESS [None]
  - HYPOACUSIS [None]
  - NERVOUS SYSTEM DISORDER [None]
